APPROVED DRUG PRODUCT: ZIPAN-25
Active Ingredient: PROMETHAZINE HYDROCHLORIDE
Strength: 25MG/ML
Dosage Form/Route: INJECTABLE;INJECTION
Application: A083997 | Product #001
Applicant: ALTANA INC
Approved: Approved Prior to Jan 1, 1982 | RLD: No | RS: No | Type: DISCN